FAERS Safety Report 13756374 (Version 2)
Quarter: 2017Q3

REPORT INFORMATION
  Report Type: Spontaneous
  Country: US (occurrence: US)
  Receive Date: 20170714
  Receipt Date: 20170828
  Transmission Date: 20171127
  Serious: Yes (Hospitalization)
  Sender: FDA-Public Use
  Company Number: US-PFIZER INC-2017303029

PATIENT
  Age: 10 Year
  Sex: Male
  Weight: 14.51 kg

DRUGS (3)
  1. SODIUM BICARBONATE. [Suspect]
     Active Substance: SODIUM BICARBONATE
     Indication: FEEDING DISORDER
     Dosage: UNK
     Dates: start: 20170614
  2. SUCCINYLCHOLINE [Suspect]
     Active Substance: SUCCINYLCHOLINE
     Indication: FEEDING DISORDER
     Dosage: UNK
     Dates: start: 20170614
  3. POTASSIUM PHOSPHATE /00493501/ [Suspect]
     Active Substance: POTASSIUM PHOSPHATE, DIBASIC
     Indication: FEEDING DISORDER
     Dosage: UNK
     Dates: start: 20170614

REACTIONS (4)
  - Pyrexia [Recovered/Resolved]
  - Poor quality drug administered [Unknown]
  - Infection [Not Recovered/Not Resolved]
  - Product contamination [Unknown]

NARRATIVE: CASE EVENT DATE: 20170626
